FAERS Safety Report 18096774 (Version 2)
Quarter: 2020Q3

REPORT INFORMATION
  Report Type: Spontaneous
  Country: US (occurrence: US)
  Receive Date: 20200730
  Receipt Date: 20200814
  Transmission Date: 20201103
  Serious: Yes (Disabling, Other)
  Sender: FDA-Public Use
  Company Number: US-PURDUE-USA-2020-0160001

PATIENT
  Sex: Male

DRUGS (3)
  1. DULOXETINE. [Concomitant]
     Active Substance: DULOXETINE
     Indication: PRODUCT USED FOR UNKNOWN INDICATION
     Dosage: UNK
     Route: 065
  2. OXYCONTIN [Suspect]
     Active Substance: OXYCODONE HYDROCHLORIDE
     Indication: PRODUCT USED FOR UNKNOWN INDICATION
     Dosage: UNK
     Route: 048
  3. REMERON [Concomitant]
     Active Substance: MIRTAZAPINE
     Indication: PRODUCT USED FOR UNKNOWN INDICATION
     Dosage: UNK
     Route: 065

REACTIONS (39)
  - Drug abuse [Unknown]
  - Fear [Unknown]
  - Mental disorder [Unknown]
  - Dissociation [Unknown]
  - Insomnia [Unknown]
  - Exaggerated startle response [Unknown]
  - Memory impairment [Unknown]
  - Mental impairment [Unknown]
  - Affect lability [Unknown]
  - Hypervigilance [Unknown]
  - Drug dependence [Recovered/Resolved]
  - Overdose [Unknown]
  - Pulmonary embolism [Unknown]
  - Disturbance in attention [Unknown]
  - Depression [Unknown]
  - Speech disorder [Unknown]
  - Tinnitus [Unknown]
  - Inguinal hernia [Unknown]
  - Major depression [Unknown]
  - Nightmare [Unknown]
  - Impulse-control disorder [Unknown]
  - Suicidal ideation [Unknown]
  - Deep vein thrombosis [Unknown]
  - Irritability [Unknown]
  - Behaviour disorder [Unknown]
  - Haemorrhoids [Unknown]
  - Post-traumatic stress disorder [Unknown]
  - Disability [Unknown]
  - Hallucination [Unknown]
  - Deafness [Unknown]
  - Sedation [Unknown]
  - Anxiety [Unknown]
  - Alcohol use [Unknown]
  - Agitation [Unknown]
  - Apathy [Unknown]
  - Depressed mood [Unknown]
  - Mood altered [Unknown]
  - Unevaluable event [Unknown]
  - Panic disorder [Unknown]
